FAERS Safety Report 18242084 (Version 1)
Quarter: 2020Q3

REPORT INFORMATION
  Report Type: Spontaneous
  Country: US (occurrence: US)
  Receive Date: 20200908
  Receipt Date: 20200908
  Transmission Date: 20201103
  Serious: Yes (Other)
  Sender: FDA-Public Use
  Company Number: None

PATIENT
  Age: 28 Year
  Sex: Female
  Weight: 56.25 kg

DRUGS (2)
  1. CYMBALTA [Suspect]
     Active Substance: DULOXETINE HYDROCHLORIDE
  2. ORGANIC MULTIVITAMIN [Concomitant]

REACTIONS (8)
  - Decreased appetite [None]
  - Nausea [None]
  - Mood swings [None]
  - Dizziness [None]
  - Headache [None]
  - Withdrawal syndrome [None]
  - Diarrhoea [None]
  - Paraesthesia [None]

NARRATIVE: CASE EVENT DATE: 20190901
